FAERS Safety Report 8021509-8 (Version None)
Quarter: 2011Q4

REPORT INFORMATION
  Report Type: 
  Country: None (occurrence: None)
  Receive Date: 20111229
  Receipt Date: 20111213
  Transmission Date: 20120403
  Serious: Yes (Disabling)
  Sender: FDA-Public Use
  Company Number: FK201103010

PATIENT
  Age: 18 Year

DRUGS (4)
  1. ETOPOSIDE [Suspect]
     Indication: MEDULLOBLASTOMA
  2. IFOSFAMIDE [Suspect]
     Indication: MEDULLOBLASTOMA
  3. CISPLATIN [Suspect]
     Indication: MEDULLOBLASTOMA
  4. NIMUSTINE HYDROCHLORIDE (NIMUSTINE HYDORCHLORIDE) (NIMUSTINE HYDROCHLO [Concomitant]

REACTIONS (1)
  - HEARING IMPAIRED [None]
